FAERS Safety Report 13412346 (Version 3)
Quarter: 2024Q2

REPORT INFORMATION
  Report Type: Spontaneous
  Country: US (occurrence: US)
  Receive Date: 20170406
  Receipt Date: 20240412
  Transmission Date: 20240716
  Serious: No
  Sender: FDA-Public Use
  Company Number: US-JNJFOC-20170309398

PATIENT
  Age: 11 Year
  Sex: Male

DRUGS (1)
  1. RISPERDAL [Suspect]
     Active Substance: RISPERIDONE
     Indication: Drug therapy
     Route: 048
     Dates: start: 20020328

REACTIONS (3)
  - Gynaecomastia [Unknown]
  - Emotional disorder [Unknown]
  - Off label use [Unknown]

NARRATIVE: CASE EVENT DATE: 20020328
